FAERS Safety Report 6568511-0 (Version None)
Quarter: 2010Q1

REPORT INFORMATION
  Report Type: 
  Country: None (occurrence: None)
  Receive Date: 20100203
  Receipt Date: 20100129
  Transmission Date: 20100710
  Serious: Yes (Other)
  Sender: FDA-Public Use
  Company Number: DE-BRISTOL-MYERS SQUIBB COMPANY-14837579

PATIENT
  Age: 51 Year
  Sex: Male
  Weight: 106 kg

DRUGS (3)
  1. PRAVASTATIN SODIUM [Suspect]
     Indication: LOW DENSITY LIPOPROTEIN INCREASED
     Route: 048
     Dates: start: 20090128, end: 20090826
  2. CONCOR [Concomitant]
     Route: 048
  3. MARCUMAR [Concomitant]

REACTIONS (1)
  - MUSCLE RUPTURE [None]
